FAERS Safety Report 9093819 (Version 1)
Quarter: 2013Q1

REPORT INFORMATION
  Report Type: Spontaneous
  Country: US (occurrence: None)
  Receive Date: 20130214
  Receipt Date: 20130214
  Transmission Date: 20140127
  Serious: Yes (Other)
  Sender: FDA-Public Use
  Company Number: None

PATIENT
  Age: 35 Year
  Sex: Female

DRUGS (1)
  1. AFNITOR 5MG NOVARTIS [Suspect]
     Route: 048
     Dates: start: 20130126

REACTIONS (1)
  - Liver function test abnormal [None]
